FAERS Safety Report 5127041-3 (Version None)
Quarter: 2006Q4

REPORT INFORMATION
  Report Type: 
  Country: None (occurrence: None)
  Receive Date: 20061013
  Receipt Date: 20061002
  Transmission Date: 20070319
  Serious: Yes (Other)
  Sender: FDA-Public Use
  Company Number: JP-MERCK-0610USA03588

PATIENT
  Age: 21 Year
  Sex: Male

DRUGS (4)
  1. DECADRON [Suspect]
     Indication: PRECURSOR T-LYMPHOBLASTIC LYMPHOMA/LEUKAEMIA STAGE IV
     Route: 048
     Dates: start: 20040101, end: 20040101
  2. PREDNISOLONE [Suspect]
     Indication: PRECURSOR T-LYMPHOBLASTIC LYMPHOMA/LEUKAEMIA STAGE IV
     Route: 065
     Dates: start: 20040101, end: 20040418
  3. CYCLOPHOSPHAMIDE [Suspect]
     Indication: PRECURSOR T-LYMPHOBLASTIC LYMPHOMA/LEUKAEMIA STAGE IV
     Route: 065
  4. [THERAPY UNSPECIFIED] [Suspect]
     Indication: PRECURSOR T-LYMPHOBLASTIC LYMPHOMA/LEUKAEMIA STAGE IV
     Route: 065

REACTIONS (2)
  - HEPATIC STEATOSIS [None]
  - INSULIN RESISTANCE [None]
